FAERS Safety Report 5658831-6 (Version None)
Quarter: 2008Q1

REPORT INFORMATION
  Report Type: 
  Country: None (occurrence: None)
  Receive Date: 20080310
  Receipt Date: 20070425
  Transmission Date: 20080703
  Serious: No
  Sender: FDA-Public Use
  Company Number: US-BAYER-200711279BCC

PATIENT
  Age: 71 Year
  Sex: Female
  Weight: 62 kg

DRUGS (5)
  1. ALEVE [Suspect]
     Indication: ARTHRALGIA
     Dosage: UNIT DOSE: 220 MG
     Route: 048
     Dates: start: 20070423
  2. ZOCOR [Concomitant]
  3. EVISTA [Concomitant]
  4. MICARDIS [Concomitant]
  5. MEMBERS MARK ASPIRIN [Concomitant]
     Route: 048

REACTIONS (1)
  - INSOMNIA [None]
